FAERS Safety Report 6602170-3 (Version None)
Quarter: 2010Q1

REPORT INFORMATION
  Report Type: 
  Country: None (occurrence: None)
  Receive Date: 20100225
  Receipt Date: 20100215
  Transmission Date: 20100710
  Serious: Yes (Other)
  Sender: FDA-Public Use
  Company Number: GB-B.I. PHARMACEUTICALS,INC./RIDGEFIELD-2009-UK-01072UK

PATIENT
  Age: 60 Year
  Sex: Male
  Weight: 120.3 kg

DRUGS (12)
  1. PRAMIPEXOLE DIHYDROCHLORIDE [Suspect]
     Indication: PARKINSON'S DISEASE
     Dosage: 0.5 MG TDS
     Route: 048
     Dates: start: 20090723, end: 20091024
  2. CLONAZEPAM [Concomitant]
  3. LACTULOSE [Concomitant]
  4. MIRTAZAPINE [Concomitant]
  5. MOVICOL [Concomitant]
  6. NITROFURANTOIN [Concomitant]
  7. RAMIPRIL [Concomitant]
  8. SIMVASTATIN [Concomitant]
  9. SINEMET [Concomitant]
  10. SINEMET CR [Concomitant]
     Dosage: 2 DF 3/DAYS
  11. SYMBICORT [Concomitant]
  12. ZOPICLONE [Concomitant]

REACTIONS (9)
  - ABNORMAL BEHAVIOUR [None]
  - AGGRESSION [None]
  - DELUSION [None]
  - FEAR [None]
  - HALLUCINATION [None]
  - IMPULSE-CONTROL DISORDER [None]
  - INSOMNIA [None]
  - JEALOUS DELUSION [None]
  - PRURITUS [None]
